FAERS Safety Report 21209019 (Version 1)
Quarter: 2022Q3

REPORT INFORMATION
  Report Type: Spontaneous
  Country: IN (occurrence: IN)
  Receive Date: 20220812
  Receipt Date: 20220812
  Transmission Date: 20221027
  Serious: Yes (Other)
  Sender: FDA-Public Use
  Company Number: IN-MLMSERVICE-20220803-3708792-1

PATIENT
  Age: 28 Year
  Sex: Male

DRUGS (2)
  1. TRAMADOL HYDROCHLORIDE [Suspect]
     Active Substance: TRAMADOL HYDROCHLORIDE
     Indication: Product used for unknown indication
     Dosage: 50 MILLIGRAM, 5/DAY
     Route: 065
  2. ALPRAZOLAM [Suspect]
     Active Substance: ALPRAZOLAM
     Dosage: 60 DOSAGE FORM, 1/DAY
     Route: 065

REACTIONS (5)
  - Drug abuse [Unknown]
  - Drug dependence [Unknown]
  - Drug withdrawal convulsions [Unknown]
  - Withdrawal catatonia [Recovering/Resolving]
  - Autonomic nervous system imbalance [Unknown]
